FAERS Safety Report 12683851 (Version 1)
Quarter: 2016Q3

REPORT INFORMATION
  Report Type: Spontaneous
  Country: BR (occurrence: BR)
  Receive Date: 20160825
  Receipt Date: 20160825
  Transmission Date: 20161109
  Serious: Yes (Hospitalization)
  Sender: FDA-Public Use
  Company Number: BR-PFIZER INC-2016399772

PATIENT
  Age: 94 Year
  Sex: Female
  Weight: 56 kg

DRUGS (2)
  1. LYRICA [Concomitant]
     Active Substance: PREGABALIN
     Indication: SPINAL PAIN
     Dosage: 75 MG, 2X/DAY (MORNING AND NIGHT)
     Route: 048
     Dates: start: 201608
  2. FRONTAL [Suspect]
     Active Substance: ALPRAZOLAM
     Indication: INSOMNIA
     Dosage: 1 MG, 1X/DAY (AT NIGHT)
     Route: 048
     Dates: start: 201605

REACTIONS (1)
  - Urinary tract infection [Unknown]

NARRATIVE: CASE EVENT DATE: 201608
